FAERS Safety Report 8200265 (Version 4)
Quarter: 2013Q1

REPORT INFORMATION
  Report Type: Report from Study
  Country: JP (occurrence: JP)
  Receive Date: 20111026
  Receipt Date: 20130211
  Transmission Date: 20140127
  Serious: Yes (Hospitalization, Other)
  Sender: FDA-Public Use
  Company Number: JP-ROCHE-1005545

PATIENT
  Age: 42 Year
  Sex: Male
  Weight: 68 kg

DRUGS (16)
  1. VALGANCICLOVIR [Suspect]
     Indication: CYTOMEGALOVIRUS INFECTION
     Route: 048
     Dates: start: 20110311, end: 20110402
  2. VALGANCICLOVIR [Suspect]
     Route: 048
     Dates: start: 20110415, end: 20110429
  3. VALGANCICLOVIR [Suspect]
     Route: 048
     Dates: start: 20110511, end: 20110525
  4. VALGANCICLOVIR [Suspect]
     Route: 048
     Dates: start: 20110526, end: 20110812
  5. VALGANCICLOVIR [Suspect]
     Route: 048
     Dates: start: 20110813, end: 20110816
  6. RITONAVIR [Suspect]
     Indication: HIV INFECTION
     Route: 048
     Dates: start: 20110225, end: 20110331
  7. EMTRICITABINE/TENOFOVIR DISOPROXIL FUMARATE [Suspect]
     Indication: HIV INFECTION
     Route: 048
     Dates: start: 20110225, end: 20110331
  8. DARUNAVIR [Suspect]
     Indication: HIV INFECTION
     Route: 048
     Dates: start: 20110225, end: 20110331
  9. CIPROXAN [Concomitant]
     Route: 048
     Dates: start: 20110127, end: 20110331
  10. CLARITHROMYCIN [Concomitant]
     Route: 048
     Dates: start: 20110127, end: 20110331
  11. ETHAMBUTOL HYDROCHLORIDE [Concomitant]
     Route: 048
     Dates: start: 20110128, end: 20110331
  12. FAMOTIDINE [Concomitant]
     Indication: HIV INFECTION
     Route: 048
     Dates: start: 20110203, end: 20110331
  13. MYCOBUTIN [Concomitant]
     Route: 048
     Dates: start: 20110225, end: 20110331
  14. BONALON [Concomitant]
     Route: 065
  15. FOSCAVIR [Concomitant]
     Route: 065
     Dates: start: 20110817, end: 20110829
  16. FOSCAVIR [Concomitant]
     Route: 065
     Dates: start: 20111011, end: 20111024

REACTIONS (5)
  - Mycobacterial infection [Not Recovered/Not Resolved]
  - Parotid lipomatosis [Not Recovered/Not Resolved]
  - Spinal compression fracture [Recovered/Resolved]
  - Immune reconstitution inflammatory syndrome [Not Recovered/Not Resolved]
  - Osteoporosis [Not Recovered/Not Resolved]
